FAERS Safety Report 4734395-6 (Version None)
Quarter: 2005Q3

REPORT INFORMATION
  Report Type: 
  Country: None (occurrence: None)
  Receive Date: 20050721
  Receipt Date: 20050414
  Transmission Date: 20060218
  Serious: No
  Sender: FDA-Public Use
  Company Number: 2005SP000199

PATIENT
  Age: 82 Year
  Sex: Female
  Weight: 54.4316 kg

DRUGS (1)
  1. LUNESTA [Suspect]
     Indication: INSOMNIA
     Dosage: 2 MG;HS;ORAL
     Route: 048
     Dates: start: 20050413, end: 20050401

REACTIONS (4)
  - DRUG INEFFECTIVE [None]
  - INSOMNIA [None]
  - PARAESTHESIA [None]
  - PRURITUS [None]
